FAERS Safety Report 19088719 (Version 2)
Quarter: 2021Q2

REPORT INFORMATION
  Report Type: Report from Study
  Country: None (occurrence: US)
  Receive Date: 20210403
  Receipt Date: 20210408
  Transmission Date: 20210717
  Serious: Yes (Other)
  Sender: FDA-Public Use
  Company Number: US-ABBVIE-21K-163-3773150-00

PATIENT
  Age: 63 Year
  Sex: Female
  Weight: 75.36 kg

DRUGS (1)
  1. HUMIRA [Suspect]
     Active Substance: ADALIMUMAB
     Indication: UVEITIS
     Dosage: CITRATE FREE
     Route: 058
     Dates: start: 20210129

REACTIONS (6)
  - Systemic lupus erythematosus [Unknown]
  - Intraocular lens implant [Unknown]
  - Conjunctivitis allergic [Recovered/Resolved]
  - Drug hypersensitivity [Recovered/Resolved]
  - Swelling of eyelid [Recovered/Resolved]
  - Noninfective retinitis [Unknown]

NARRATIVE: CASE EVENT DATE: 20210205
